FAERS Safety Report 18816882 (Version 2)
Quarter: 2021Q1

REPORT INFORMATION
  Report Type: Report from Study
  Country: JP (occurrence: JP)
  Receive Date: 20210201
  Receipt Date: 20210225
  Transmission Date: 20210419
  Serious: Yes (Other)
  Sender: FDA-Public Use
  Company Number: JP-TAKEDA-2021TJP002067

PATIENT

DRUGS (1)
  1. RAMELTEON [Suspect]
     Active Substance: RAMELTEON
     Indication: PROPHYLAXIS
     Dosage: 8 MILLIGRAM
     Route: 048

REACTIONS (9)
  - Ileus [Unknown]
  - Postoperative wound infection [Unknown]
  - Postoperative delirium [Unknown]
  - Off label use [Unknown]
  - Pleural effusion [Unknown]
  - Post procedural bile leak [Unknown]
  - Ascites [Unknown]
  - Pneumonia [Unknown]
  - Hepatic failure [Unknown]
